FAERS Safety Report 9402728 (Version 2)
Quarter: 2013Q4

REPORT INFORMATION
  Report Type: Spontaneous
  Country: GB (occurrence: GB)
  Receive Date: 20130716
  Receipt Date: 20131126
  Transmission Date: 20140711
  Serious: Yes (Life-Threatening)
  Sender: FDA-Public Use
  Company Number: GB-TEVA-417334ISR

PATIENT
  Age: 47 Year
  Sex: Male
  Weight: 72.1 kg

DRUGS (4)
  1. COPAXANE [Suspect]
     Indication: MULTIPLE SCLEROSIS
     Dosage: 20 MILLIGRAM DAILY;
     Route: 058
     Dates: start: 20100310, end: 20130530
  2. PREGABALIN [Concomitant]
  3. TADALAFIL [Concomitant]
  4. AMITRIPTYLINE [Concomitant]

REACTIONS (2)
  - Acute myocardial infarction [Recovered/Resolved]
  - Diabetes mellitus [Not Recovered/Not Resolved]
